FAERS Safety Report 25153295 (Version 1)
Quarter: 2025Q2

REPORT INFORMATION
  Report Type: Spontaneous
  Country: US (occurrence: US)
  Receive Date: 20250403
  Receipt Date: 20250403
  Transmission Date: 20250717
  Serious: No
  Sender: SANOFI AVENTIS
  Company Number: US-SA-2025SA094743

PATIENT
  Sex: Female

DRUGS (9)
  1. DUPIXENT [Suspect]
     Active Substance: DUPILUMAB
     Indication: Chronic sinusitis
     Dosage: 300MG/2ML QOW
     Route: 058
  2. AMLODIPINE BESYLATE\BENAZEPRIL HYDROCHLORIDE [Concomitant]
     Active Substance: AMLODIPINE BESYLATE\BENAZEPRIL HYDROCHLORIDE
  3. ATORVASTATIN [Concomitant]
     Active Substance: ATORVASTATIN
  4. Zelastine [Concomitant]
  5. BUDESONIDE [Concomitant]
     Active Substance: BUDESONIDE
  6. EMGALITY [Concomitant]
     Active Substance: GALCANEZUMAB-GNLM
  7. LOSARTAN POTASSIUM [Concomitant]
     Active Substance: LOSARTAN POTASSIUM
  8. METFORMIN HYDROCHLORIDE [Concomitant]
     Active Substance: METFORMIN HYDROCHLORIDE
  9. Meprazole [Concomitant]

REACTIONS (3)
  - Ocular hyperaemia [Unknown]
  - Skin exfoliation [Unknown]
  - Eye pruritus [Unknown]
